FAERS Safety Report 24215982 (Version 1)
Quarter: 2024Q3

REPORT INFORMATION
  Report Type: Report from Study
  Country: TW (occurrence: TW)
  Receive Date: 20240816
  Receipt Date: 20240816
  Transmission Date: 20241016
  Serious: Yes (Other)
  Sender: GILEAD
  Company Number: TW-GILEAD-2024-0684180

PATIENT
  Age: 50 Year
  Sex: Male

DRUGS (1)
  1. TENOFOVIR ALAFENAMIDE [Suspect]
     Active Substance: TENOFOVIR ALAFENAMIDE
     Indication: Hepatitis B
     Dosage: 300 MG
     Route: 048

REACTIONS (1)
  - Hepatitis B reactivation [Unknown]
